FAERS Safety Report 9521344 (Version 1)
Quarter: 2013Q3

REPORT INFORMATION
  Report Type: Spontaneous
  Country: US (occurrence: None)
  Receive Date: 20130911
  Receipt Date: 20130911
  Transmission Date: 20140515
  Serious: No
  Sender: FDA-Public Use
  Company Number: 2013AP007867

PATIENT
  Age: 20 Year
  Sex: Female

DRUGS (6)
  1. BALSALAZIDE DISODIUM [Suspect]
     Indication: COLITIS ULCERATIVE
     Route: 048
  2. SULFASALAZINE [Suspect]
     Indication: COLITIS ULCERATIVE
     Route: 048
  3. MESALAZINE [Suspect]
     Indication: COLITIS ULCERATIVE
     Route: 054
  4. HYDROCORTISONE [Concomitant]
  5. IBUPROFEN [Concomitant]
  6. COLCHICINE [Concomitant]

REACTIONS (8)
  - Cardiac tamponade [None]
  - Myocarditis [None]
  - Leukocytosis [None]
  - Neutrophilia [None]
  - Troponin increased [None]
  - Red blood cell sedimentation rate increased [None]
  - Pericardial effusion [None]
  - Haemodynamic instability [None]
